FAERS Safety Report 23062792 (Version 1)
Quarter: 2023Q4

REPORT INFORMATION
  Report Type: Spontaneous
  Country: PE (occurrence: PE)
  Receive Date: 20231013
  Receipt Date: 20231013
  Transmission Date: 20240110
  Serious: Yes (Hospitalization, Disabling)
  Sender: FDA-Public Use
  Company Number: PE-MYLANLABS-2023M1107671

PATIENT
  Sex: Female

DRUGS (8)
  1. SERTRALINE [Suspect]
     Active Substance: SERTRALINE HYDROCHLORIDE
     Indication: Product used for unknown indication
     Dosage: HALF TABLET (24 HOURS PER 3 DAYS)
     Route: 048
     Dates: start: 20220917
  2. COVID-19 VACCINE NOS [Suspect]
     Active Substance: COVID-19 VACCINE NOS
     Indication: COVID-19
     Dosage: UNK
     Route: 030
     Dates: start: 20210701, end: 20210701
  3. PREDNISOLONE [Concomitant]
     Active Substance: PREDNISOLONE
     Indication: Product used for unknown indication
     Dosage: 1 DOSAGE FORM, QD (24 HOURS PER 15 DAYS)
     Route: 048
  4. ACETAMINOPHEN [Concomitant]
     Active Substance: ACETAMINOPHEN
     Indication: Pain
     Dosage: 2 DOSAGE FORM, TID (8 HOURS)
     Route: 048
  5. LORATADINE [Concomitant]
     Active Substance: LORATADINE
     Indication: Product used for unknown indication
     Dosage: 1 DOSAGE FORM, QD (24 HOURS PER 10 DAYS)
     Route: 065
  6. SODIUM HYALURONATE [Concomitant]
     Active Substance: HYALURONATE SODIUM
     Indication: Product used for unknown indication
     Dosage: 1 GTT DROPS, QD (1 DROP IN EACH EYE) DAILY
     Route: 047
  7. CLONAZEPAM [Concomitant]
     Active Substance: CLONAZEPAM
     Indication: Product used for unknown indication
     Dosage: 1 DOSAGE FORM, QD (24 HOURS)
     Route: 048
  8. ESTRIOL [Concomitant]
     Active Substance: ESTRIOL
     Indication: Product used for unknown indication
     Dosage: 1 DOSAGE FORM, QD (AT NIGHT PER 3 WEEKS)
     Route: 067

REACTIONS (5)
  - Disease progression [Unknown]
  - Arthritis [Unknown]
  - Arthralgia [Unknown]
  - Gait disturbance [Unknown]
  - General physical health deterioration [Unknown]
